FAERS Safety Report 20578753 (Version 1)
Quarter: 2022Q1

REPORT INFORMATION
  Report Type: Spontaneous
  Country: US (occurrence: None)
  Receive Date: 20220310
  Receipt Date: 20220310
  Transmission Date: 20220424
  Serious: No
  Sender: FDA-Public Use
  Company Number: None

PATIENT
  Age: 66 Year
  Sex: Male
  Weight: 84 kg

DRUGS (1)
  1. ROPINIROLE HYDROCHLORIDE [Suspect]
     Active Substance: ROPINIROLE HYDROCHLORIDE
     Indication: Restless legs syndrome
     Dosage: FREQUENCY : AT BEDTIME;?
     Dates: start: 20201127, end: 20201227

REACTIONS (6)
  - Confusional state [None]
  - Speech disorder [None]
  - Blood glucose increased [None]
  - Somnolence [None]
  - Sedation [None]
  - Incorrect dose administered [None]

NARRATIVE: CASE EVENT DATE: 20201228
